FAERS Safety Report 5863408-3 (Version None)
Quarter: 2008Q3

REPORT INFORMATION
  Report Type: 
  Country: None (occurrence: None)
  Receive Date: 20080828
  Receipt Date: 20080821
  Transmission Date: 20090109
  Serious: Yes (Hospitalization, Other)
  Sender: FDA-Public Use
  Company Number: PHEH2008US01791

PATIENT
  Sex: Male
  Weight: 87.075 kg

DRUGS (4)
  1. AREDIA [Suspect]
     Indication: METASTASES TO BONE
     Dosage: 90 MG, EVERY 4 WEEKS
     Route: 042
     Dates: start: 20071103, end: 20080206
  2. ANTINEOPLASTIC AGENTS [Suspect]
     Dates: start: 20080116
  3. CARBOPLATIN [Concomitant]
     Indication: LUNG NEOPLASM MALIGNANT
     Dosage: UNK
     Route: 042
     Dates: start: 20071024, end: 20080205
  4. ETOPOSIDE [Concomitant]
     Indication: LUNG NEOPLASM MALIGNANT
     Dosage: Q3 WEEKS FOR 3 DAYS
     Route: 042
     Dates: start: 20071024, end: 20080205

REACTIONS (3)
  - CARDIOTOXICITY [None]
  - CHILLS [None]
  - DYSPNOEA [None]
